FAERS Safety Report 6646252-9 (Version None)
Quarter: 2010Q1

REPORT INFORMATION
  Report Type: 
  Country: None (occurrence: None)
  Receive Date: 20100323
  Receipt Date: 20100217
  Transmission Date: 20100710
  Serious: No
  Sender: FDA-Public Use
  Company Number: US-BAYER-201012238BCC

PATIENT
  Age: 38 Year
  Sex: Female
  Weight: 82 kg

DRUGS (3)
  1. ALEVE (CAPLET) [Suspect]
     Indication: SWELLING
     Dosage: TOTAL DAILY DOSE: 220 MG  UNIT DOSE: 220 MG
     Route: 048
     Dates: start: 20100217
  2. HYDROCODONE [Concomitant]
     Indication: PAIN
     Route: 065
     Dates: start: 20100217
  3. BIRTH CONTROL [Concomitant]
     Route: 065

REACTIONS (4)
  - DARK CIRCLES UNDER EYES [None]
  - DIZZINESS [None]
  - DYSPEPSIA [None]
  - NAUSEA [None]
